FAERS Safety Report 7556701-X (Version None)
Quarter: 2011Q2

REPORT INFORMATION
  Report Type: 
  Country: None (occurrence: None)
  Receive Date: 20110620
  Receipt Date: 20110614
  Transmission Date: 20111010
  Serious: Yes (Other)
  Sender: FDA-Public Use
  Company Number: ES-PFIZER INC-2011130671

PATIENT
  Age: 19 Year
  Sex: Female

DRUGS (3)
  1. ESCITALOPRAM [Interacting]
     Indication: DEPRESSION
     Dosage: 30 MG, 1X/DAY
     Route: 048
     Dates: start: 20090101, end: 20100901
  2. RISPERIDONE [Interacting]
     Indication: ABNORMAL BEHAVIOUR
     Dosage: 0.5 MG, 1X/DAY
     Route: 048
     Dates: start: 20100409, end: 20100801
  3. MEDROXYPROGESTERONE ACETATE [Suspect]
     Indication: CONTRACEPTION
     Dosage: 150 MG, EVERY 3 MONTHS
     Route: 030
     Dates: start: 20090101

REACTIONS (2)
  - DRUG INTERACTION [None]
  - ABNORMAL WEIGHT GAIN [None]
